FAERS Safety Report 4347764-3 (Version None)
Quarter: 2004Q2

REPORT INFORMATION
  Report Type: 
  Country: None (occurrence: None)
  Receive Date: 20040422
  Receipt Date: 20040406
  Transmission Date: 20050107
  Serious: Yes (Hospitalization, Other)
  Sender: FDA-Public Use
  Company Number: USA030434903

PATIENT
  Sex: Male

DRUGS (2)
  1. ZYPREXA [Suspect]
  2. MORPHINE [Concomitant]

REACTIONS (8)
  - ABNORMAL BEHAVIOUR [None]
  - ANGER [None]
  - BLADDER CANCER [None]
  - DRY MOUTH [None]
  - IMPULSE-CONTROL DISORDER [None]
  - PROSTATECTOMY [None]
  - SCREAMING [None]
  - SPEECH DISORDER [None]
